FAERS Safety Report 23652062 (Version 1)
Quarter: 2024Q1

REPORT INFORMATION
  Report Type: Other
  Country: CN (occurrence: CN)
  Receive Date: 20240320
  Receipt Date: 20240320
  Transmission Date: 20240410
  Serious: Yes (Other)
  Sender: FDA-Public Use
  Company Number: CN-PHATHOM PHARMACEUTICALS INC.-2024PHT00140

PATIENT
  Age: 80 Year
  Sex: Female
  Weight: 40 kg

DRUGS (2)
  1. VONOPRAZAN [Suspect]
     Active Substance: VONOPRAZAN
     Indication: Gastrooesophageal reflux disease
     Dosage: 20 MG, 1X/DAY
     Route: 048
     Dates: start: 20240202, end: 20240304
  2. CEFPROZIL [Suspect]
     Active Substance: CEFPROZIL
     Indication: Infection
     Dosage: UNK, 2X/DAY
     Route: 048
     Dates: start: 20240221, end: 20240304

REACTIONS (1)
  - White blood cell count decreased [Recovered/Resolved]

NARRATIVE: CASE EVENT DATE: 20240304
